FAERS Safety Report 7654611-0 (Version None)
Quarter: 2011Q3

REPORT INFORMATION
  Report Type: 
  Country: None (occurrence: None)
  Receive Date: 20110803
  Receipt Date: 20110725
  Transmission Date: 20111222
  Serious: Yes (Hospitalization)
  Sender: FDA-Public Use
  Company Number: US-ASTRAZENECA-2011SE44260

PATIENT
  Age: 66 Year
  Sex: Male
  Weight: 63.5 kg

DRUGS (21)
  1. SAW PALMETTO [Concomitant]
  2. PEPCID [Concomitant]
  3. CRANBERRY [Concomitant]
  4. PULMICORT FLEXHALER [Suspect]
     Dosage: 180 MCG 1 PUFF EVERY 12 HOUR
     Route: 055
     Dates: start: 20110401
  5. POTASSIUM [Concomitant]
  6. PULMICORT FLEXHALER [Suspect]
     Dosage: 2 PUFFS TWO TIMES A DAY
     Route: 055
  7. CALCIUM ACETATE [Concomitant]
  8. PULMICORT FLEXHALER [Suspect]
     Indication: ASTHMA
     Dosage: 2 PUFFS IN THE MORNING
     Route: 055
  9. XANAX [Concomitant]
  10. ALLEGRA [Concomitant]
     Indication: MULTIPLE ALLERGIES
  11. NOVOLOG [Concomitant]
     Indication: DIABETES MELLITUS
     Dosage: 2-6 UG
  12. MULTI-VITAMIN [Concomitant]
  13. LIPITOR [Concomitant]
  14. CO Q10 [Concomitant]
  15. OMEGA FISHOILS [Concomitant]
  16. LANTES INSULIN [Concomitant]
  17. ASPIRIN [Concomitant]
     Route: 048
  18. VIT D [Concomitant]
  19. PROAIR HFA [Concomitant]
  20. LISINOPRIL [Concomitant]
  21. METOPROLOL TARTRATE [Concomitant]

REACTIONS (5)
  - MYOCARDIAL INFARCTION [None]
  - STENT PLACEMENT [None]
  - RESPIRATORY TRACT CONGESTION [None]
  - DYSPNOEA [None]
  - VISUAL IMPAIRMENT [None]
